FAERS Safety Report 21774614 (Version 1)
Quarter: 2022Q4

REPORT INFORMATION
  Report Type: Report from Study
  Country: US (occurrence: US)
  Receive Date: 20221224
  Receipt Date: 20221224
  Transmission Date: 20230113
  Serious: Yes (Other)
  Sender: FDA-Public Use
  Company Number: US-TAKEDA-2022TUS071776

PATIENT
  Sex: Male
  Weight: 83.6 kg

DRUGS (2)
  1. BRIGATINIB [Suspect]
     Active Substance: BRIGATINIB
     Indication: Neoplasm malignant
     Dosage: 90 MILLIGRAM, QD
     Route: 065
     Dates: start: 20221006
  2. BRIGATINIB [Suspect]
     Active Substance: BRIGATINIB
     Indication: Inflammatory myofibroblastic tumour
     Dosage: 180 MILLIGRAM, QD
     Route: 065
     Dates: start: 202210, end: 20221216

REACTIONS (4)
  - Neoplasm malignant [Unknown]
  - Malaise [Unknown]
  - Drug ineffective [Unknown]
  - Off label use [Unknown]
